FAERS Safety Report 11055303 (Version 2)
Quarter: 2015Q2

REPORT INFORMATION
  Report Type: Spontaneous
  Country: US (occurrence: US)
  Receive Date: 20150422
  Receipt Date: 20150619
  Transmission Date: 20150821
  Serious: No
  Sender: FDA-Public Use
  Company Number: US-PFIZER INC-2015135150

PATIENT
  Age: 46 Year
  Sex: Female
  Weight: 58 kg

DRUGS (3)
  1. CELECOXIB. [Suspect]
     Active Substance: CELECOXIB
     Indication: NERVE COMPRESSION
     Dosage: 400 MG, 2X/DAY
     Route: 048
     Dates: start: 20150401, end: 20150412
  2. CELEBREX [Concomitant]
     Active Substance: CELECOXIB
  3. CABERGOLINE. [Concomitant]
     Active Substance: CABERGOLINE
     Dosage: UNK

REACTIONS (4)
  - Drug ineffective [Recovering/Resolving]
  - Pain [Recovering/Resolving]
  - Insomnia [Unknown]
  - Neck pain [Unknown]

NARRATIVE: CASE EVENT DATE: 201504
